FAERS Safety Report 7492369-9 (Version None)
Quarter: 2011Q2

REPORT INFORMATION
  Report Type: 
  Country: None (occurrence: None)
  Receive Date: 20110519
  Receipt Date: 20110429
  Transmission Date: 20111010
  Serious: Yes (Other)
  Sender: FDA-Public Use
  Company Number: US-BAYER-2011-032255

PATIENT
  Age: 30 Year
  Sex: Female
  Weight: 51.247 kg

DRUGS (7)
  1. YASMIN [Suspect]
     Indication: ORAL CONTRACEPTION
     Dosage: UNK UNK, QD
  2. DROSPIRENONE AND ETHINYL ESTRADIOL [Suspect]
     Indication: ORAL CONTRACEPTION
     Dosage: UNK UNK, QD
  3. RANITIDINE [Concomitant]
     Indication: GASTROOESOPHAGEAL REFLUX DISEASE
     Dosage: UNK
     Dates: start: 20080419, end: 20080503
  4. HYDROXYZINE [Concomitant]
     Indication: ANXIETY
     Dosage: UNK
     Dates: start: 20080419, end: 20080426
  5. PREDNISONE [Concomitant]
     Indication: SWELLING
     Dosage: UNK
     Dates: start: 20080419, end: 20080430
  6. PROTONIX [Concomitant]
     Indication: GASTROOESOPHAGEAL REFLUX DISEASE
  7. YAZ [Suspect]
     Indication: ORAL CONTRACEPTION
     Dosage: UNK UNK, QD

REACTIONS (10)
  - FLATULENCE [None]
  - INJURY [None]
  - DIARRHOEA [None]
  - CONSTIPATION [None]
  - ANXIETY [None]
  - CHOLECYSTECTOMY [None]
  - DEPRESSION [None]
  - CHOLECYSTITIS CHRONIC [None]
  - ABDOMINAL DISTENSION [None]
  - DYSPEPSIA [None]
